FAERS Safety Report 24794205 (Version 1)
Quarter: 2024Q4

REPORT INFORMATION
  Report Type: Spontaneous
  Country: US (occurrence: US)
  Receive Date: 20241231
  Receipt Date: 20241231
  Transmission Date: 20250115
  Serious: Yes (Hospitalization, Other)
  Sender: BIOVITRUM
  Company Number: US-BIOVITRUM-2024-US-016703

PATIENT
  Sex: Male

DRUGS (1)
  1. SYNAGIS [Suspect]
     Active Substance: PALIVIZUMAB
     Indication: Corrected transposition of great vessels
     Dosage: EVERY 28 DAYS-30 DAYS
     Route: 030
     Dates: start: 20240909

REACTIONS (2)
  - Pulmonary oedema [Recovering/Resolving]
  - Lactose intolerance [Recovering/Resolving]
